FAERS Safety Report 23705257 (Version 1)
Quarter: 2024Q2

REPORT INFORMATION
  Report Type: Other
  Country: ZA (occurrence: None)
  Receive Date: 20240404
  Receipt Date: 20240404
  Transmission Date: 20240715
  Serious: Yes (Other)
  Sender: FDA-Public Use
  Company Number: ZA-ROCHE-3535406

PATIENT
  Sex: Female

DRUGS (1)
  1. OCREVUS [Suspect]
     Active Substance: OCRELIZUMAB
     Indication: Multiple sclerosis
     Dosage: THEN 600 MG EVERY 6 MONTH
     Route: 041
     Dates: start: 20230508

REACTIONS (2)
  - Neurological decompensation [Unknown]
  - Paraparesis [Unknown]

NARRATIVE: CASE EVENT DATE: 20240318
